FAERS Safety Report 13948824 (Version 1)
Quarter: 2017Q3

REPORT INFORMATION
  Report Type: Spontaneous
  Country: JP (occurrence: JP)
  Receive Date: 20170908
  Receipt Date: 20170908
  Transmission Date: 20171128
  Serious: Yes (Other)
  Sender: FDA-Public Use
  Company Number: JP-PFIZER INC-2017386857

PATIENT
  Sex: Male

DRUGS (7)
  1. NORVASC [Suspect]
     Active Substance: AMLODIPINE BESYLATE
     Dosage: 5 MG, UNK
     Route: 048
  2. DEPAKENE [Concomitant]
     Active Substance: VALPROIC ACID
     Dosage: UNK
  3. LEXAPRO [Concomitant]
     Active Substance: ESCITALOPRAM OXALATE
  4. WYPAX 0.5 [Suspect]
     Active Substance: LORAZEPAM
     Dosage: 2 MG, UNK
     Route: 048
  5. SELENICA R [Concomitant]
     Active Substance: VALPROATE SODIUM
     Dosage: UNK
  6. BLOPRESS [Concomitant]
     Active Substance: CANDESARTAN CILEXETIL
     Dosage: UNK
  7. HIRNAMIN [Concomitant]
     Active Substance: PHENOTHIAZINE
     Dosage: UNK

REACTIONS (1)
  - Altered state of consciousness [Unknown]
